FAERS Safety Report 8122113-3 (Version None)
Quarter: 2012Q1

REPORT INFORMATION
  Report Type: 
  Country: None (occurrence: None)
  Receive Date: 20120206
  Receipt Date: 20120123
  Transmission Date: 20120608
  Serious: Yes (Hospitalization, Other)
  Sender: FDA-Public Use
  Company Number: 2012MA001000

PATIENT
  Sex: Male

DRUGS (13)
  1. DIGOXIN [Suspect]
     Indication: PRODUCT USED FOR UNKNOWN INDICATION
     Dosage: 0.125 MG;QD;PO
     Route: 048
     Dates: start: 20051214, end: 20080601
  2. METOPROLOL TARTRATE [Concomitant]
  3. KLOR-CON [Concomitant]
  4. ASPIRIN [Concomitant]
  5. COLACE [Concomitant]
  6. BENAZEPRIL HYDROCHLORIDE [Concomitant]
  7. FUROSEMIDE [Concomitant]
  8. METFORMIN HCL [Concomitant]
  9. LEVOFLOXACIN [Concomitant]
  10. VERAPAMIL [Concomitant]
  11. PROTONIX [Concomitant]
  12. TRICOR [Concomitant]
  13. WARFARIN SODIUM [Concomitant]

REACTIONS (28)
  - DIABETES MELLITUS [None]
  - WHITE BLOOD CELL COUNT INCREASED [None]
  - MULTIPLE INJURIES [None]
  - PAIN [None]
  - DYSPNOEA [None]
  - MITRAL VALVE INCOMPETENCE [None]
  - ENDOCARDITIS [None]
  - MITRAL VALVE REPAIR [None]
  - OEDEMA PERIPHERAL [None]
  - CARDIOMEGALY [None]
  - ORTHOPNOEA [None]
  - DYSPNOEA EXERTIONAL [None]
  - CHEST DISCOMFORT [None]
  - PNEUMONIA [None]
  - CARDIAC DISORDER [None]
  - UNEVALUABLE EVENT [None]
  - ANXIETY [None]
  - ECONOMIC PROBLEM [None]
  - LEGAL PROBLEM [None]
  - SURGICAL FAILURE [None]
  - AORTIC VALVE INCOMPETENCE [None]
  - CARDIAC FAILURE CONGESTIVE [None]
  - HEART DISEASE CONGENITAL [None]
  - DYSLIPIDAEMIA [None]
  - PULMONARY HYPERTENSION [None]
  - HAEMOPTYSIS [None]
  - CARDIAC MURMUR [None]
  - LUNG INFILTRATION [None]
